FAERS Safety Report 7479493-1 (Version None)
Quarter: 2011Q2

REPORT INFORMATION
  Report Type: 
  Country: None (occurrence: None)
  Receive Date: 20110513
  Receipt Date: 20110429
  Transmission Date: 20111010
  Serious: Yes (Hospitalization)
  Sender: FDA-Public Use
  Company Number: PHHY2010RU86930

PATIENT
  Age: 38 Year
  Sex: Female

DRUGS (4)
  1. MEMANTINE [Concomitant]
  2. GLIATILIN [Concomitant]
     Dosage: UNK
  3. EXTAVIA [Suspect]
     Indication: MULTIPLE SCLEROSIS
     Dosage: UNK
     Dates: start: 20101105
  4. NOOTROPIL [Concomitant]
     Dosage: UNK

REACTIONS (2)
  - GAIT APRAXIA [None]
  - COGNITIVE DISORDER [None]
